FAERS Safety Report 10877821 (Version 1)
Quarter: 2015Q1

REPORT INFORMATION
  Report Type: Spontaneous
  Country: US (occurrence: None)
  Receive Date: 20150225
  Receipt Date: 20150225
  Transmission Date: 20150721
  Serious: Yes (Other)
  Sender: FDA-Public Use
  Company Number: None

PATIENT
  Age: 68 Year
  Sex: Female
  Weight: 70 kg

DRUGS (24)
  1. ELIQUIS [Suspect]
     Active Substance: APIXABAN
     Indication: ATRIAL FIBRILLATION
     Dosage: 1 TAB
     Route: 048
  2. FLUCONAZOLE. [Concomitant]
     Active Substance: FLUCONAZOLE
  3. ACETAMINOPHEN PRN [Concomitant]
  4. ZITHROMAX [Concomitant]
     Active Substance: AZITHROMYCIN DIHYDRATE
  5. INSULIN [Concomitant]
     Active Substance: INSULIN NOS
  6. ZOSYN [Concomitant]
     Active Substance: PIPERACILLIN SODIUM\TAZOBACTAM SODIUM
  7. CLONIDINE. [Concomitant]
     Active Substance: CLONIDINE
  8. DILTIAZEM [Concomitant]
     Active Substance: DILTIAZEM
  9. DOCUSATE [Concomitant]
     Active Substance: DOCUSATE
  10. PREDNISONE. [Concomitant]
     Active Substance: PREDNISONE
  11. ROCEPHIN [Concomitant]
     Active Substance: CEFTRIAXONE SODIUM
  12. TOPROL XL [Concomitant]
     Active Substance: METOPROLOL SUCCINATE
  13. RENVELA [Concomitant]
     Active Substance: SEVELAMER CARBONATE
  14. ALBUTEROL NEBULIZATION [Concomitant]
  15. RENA VITE TABS [Concomitant]
  16. MUCINEX [Concomitant]
     Active Substance: GUAIFENESIN
  17. PROTONIX DRIP [Concomitant]
  18. TESSALON [Concomitant]
     Active Substance: BENZONATATE
  19. PROCRIT [Concomitant]
     Active Substance: ERYTHROPOIETIN
  20. CULTURELLE [Concomitant]
     Active Substance: LACTOBACILLUS RHAMNOSUS
  21. SOLU-MEDROL [Concomitant]
     Active Substance: METHYLPREDNISOLONE SODIUM SUCCINATE
  22. BACTRIM [Concomitant]
     Active Substance: SULFAMETHOXAZOLE\TRIMETHOPRIM
  23. THEOPHYLLINE [Concomitant]
     Active Substance: THEOPHYLLINE ANHYDROUS
  24. DIOVAN [Concomitant]
     Active Substance: VALSARTAN

REACTIONS (11)
  - Cardiac failure congestive [None]
  - Atrial flutter [None]
  - Epistaxis [None]
  - Gastrointestinal arteriovenous malformation [None]
  - Oesophageal ulcer haemorrhage [None]
  - Haematocrit decreased [None]
  - Pneumonia [None]
  - Bradycardia [None]
  - Chronic obstructive pulmonary disease [None]
  - Haemoptysis [None]
  - Gastrointestinal haemorrhage [None]

NARRATIVE: CASE EVENT DATE: 20150207
